FAERS Safety Report 4277074-4 (Version None)
Quarter: 2004Q1

REPORT INFORMATION
  Report Type: 
  Country: None (occurrence: None)
  Receive Date: 20040120
  Receipt Date: 20040116
  Transmission Date: 20041129
  Serious: Yes (Life-Threatening, Hospitalization)
  Sender: FDA-Public Use
  Company Number: THQ2004A00113

PATIENT
  Age: 62 Year
  Sex: Female

DRUGS (2)
  1. ACTOS [Suspect]
     Indication: DIABETES MELLITUS NON-INSULIN-DEPENDENT
     Dosage: 30 MG (30 MG, MORNING BEFORE MEAL) PER ORAL
     Route: 048
     Dates: start: 20030701, end: 20030901
  2. VITAMIN (VITAMINS NOS) [Concomitant]

REACTIONS (3)
  - CARDIOMEGALY [None]
  - DYSPNOEA [None]
  - PULMONARY OEDEMA [None]
